FAERS Safety Report 9988587 (Version 1)
Quarter: 2014Q1

REPORT INFORMATION
  Report Type: Spontaneous
  Country: US (occurrence: US)
  Receive Date: 20140310
  Receipt Date: 20140310
  Transmission Date: 20141002
  Serious: No
  Sender: FDA-Public Use
  Company Number: US-009507513-1403USA003133

PATIENT
  Age: 45 Year
  Sex: Female
  Weight: 72.56 kg

DRUGS (1)
  1. NUVARING [Suspect]
     Indication: CONTRACEPTION
     Dosage: UNK
     Route: 067
     Dates: start: 20140204

REACTIONS (6)
  - Night sweats [Unknown]
  - Haemorrhage [Unknown]
  - Hot flush [Unknown]
  - Nausea [Unknown]
  - Headache [Unknown]
  - Drug administered to patient of inappropriate age [Unknown]
